FAERS Safety Report 15839835 (Version 7)
Quarter: 2020Q3

REPORT INFORMATION
  Report Type: Report from Study
  Country: US (occurrence: US)
  Receive Date: 20190117
  Receipt Date: 20200720
  Transmission Date: 20201102
  Serious: Yes (Hospitalization)
  Sender: FDA-Public Use
  Company Number: US-ACTELION-A-US2019-184661

PATIENT
  Age: 18 Year
  Sex: Female
  Weight: 63.49 kg

DRUGS (4)
  1. OPSUMIT [Suspect]
     Active Substance: MACITENTAN
     Indication: PULMONARY ARTERIAL HYPERTENSION
     Dosage: 10 MG, QD
     Route: 048
     Dates: start: 20181213
  2. REMODULIN [Concomitant]
     Active Substance: TREPROSTINIL
  3. TADALAFIL. [Concomitant]
     Active Substance: TADALAFIL
  4. ADCIRCA [Concomitant]
     Active Substance: TADALAFIL

REACTIONS (10)
  - Haemorrhage [Unknown]
  - Infusion site haemorrhage [Unknown]
  - Mental disorder [Unknown]
  - Haemoglobin decreased [Unknown]
  - Catheterisation cardiac [Unknown]
  - Pyrexia [Unknown]
  - Presyncope [Unknown]
  - Atrial septal defect repair [Unknown]
  - Haematocrit decreased [Unknown]
  - Vascular device infection [Unknown]

NARRATIVE: CASE EVENT DATE: 20200114
